FAERS Safety Report 18368751 (Version 1)
Quarter: 2020Q4

REPORT INFORMATION
  Report Type: Spontaneous
  Country: US (occurrence: US)
  Receive Date: 20201010
  Receipt Date: 20201010
  Transmission Date: 20210114
  Serious: Yes (Hospitalization, Other)
  Sender: FDA-Public Use
  Company Number: US-SCIEGEN-2019SCILIT00382

PATIENT
  Age: 15 Year
  Sex: Female

DRUGS (4)
  1. SOYA OIL EMULSION [Interacting]
     Active Substance: SOYBEAN OIL
     Indication: PRODUCT USED FOR UNKNOWN INDICATION
     Route: 042
  2. BUPROPION HYDROCHLORIDE EXTENDED-RELEASE TABLETS USP (SR), 150 MG [Suspect]
     Active Substance: BUPROPION HYDROCHLORIDE
     Indication: PRODUCT USED FOR UNKNOWN INDICATION
     Route: 065
  3. SODIUM CHLORIDE. [Interacting]
     Active Substance: SODIUM CHLORIDE
     Indication: PRODUCT USED FOR UNKNOWN INDICATION
     Route: 065
  4. LORAZEPAM. [Interacting]
     Active Substance: LORAZEPAM
     Indication: SEIZURE
     Route: 065

REACTIONS (14)
  - Somnolence [Recovered/Resolved]
  - Disorganised speech [Recovered/Resolved]
  - Sinus tachycardia [Recovered/Resolved]
  - Eye movement disorder [Recovered/Resolved]
  - Postictal state [Recovered/Resolved]
  - Myoclonus [Recovered/Resolved]
  - Transaminases increased [Recovered/Resolved]
  - Respiratory alkalosis [Recovered/Resolved]
  - Vomiting [Recovered/Resolved]
  - Metabolic acidosis [Recovered/Resolved]
  - Therapeutic product cross-reactivity [Recovered/Resolved]
  - Intentional overdose [Recovered/Resolved]
  - Generalised tonic-clonic seizure [Recovered/Resolved]
  - Dyskinesia [Recovered/Resolved]
